FAERS Safety Report 12949834 (Version 2)
Quarter: 2016Q4

REPORT INFORMATION
  Report Type: Spontaneous
  Country: CI (occurrence: CI)
  Receive Date: 20161117
  Receipt Date: 20161130
  Transmission Date: 20170207
  Serious: Yes (Life-Threatening, Disabling)
  Sender: FDA-Public Use
  Company Number: CI-009507513-1611CIV004318

PATIENT
  Age: 18 Year
  Sex: Male

DRUGS (4)
  1. CELESTENE [Suspect]
     Active Substance: BETAMETHASONE
     Indication: NASOPHARYNGITIS
  2. CELESTENE [Suspect]
     Active Substance: BETAMETHASONE
     Indication: RHINITIS ALLERGIC
     Dosage: 2 MG (ONE TABLET, TWICE A DAY)
     Route: 048
     Dates: start: 20161020, end: 20161028
  3. OMEPRAZOLE. [Concomitant]
     Active Substance: OMEPRAZOLE
     Indication: RHINITIS ALLERGIC
     Route: 065
  4. CELESTENE [Suspect]
     Active Substance: BETAMETHASONE
     Indication: COUGH

REACTIONS (4)
  - Swelling face [Recovered/Resolved]
  - Dizziness [Recovered/Resolved]
  - Dyspnoea [Recovered/Resolved]
  - Hiccups [Recovered/Resolved]

NARRATIVE: CASE EVENT DATE: 20161020
